FAERS Safety Report 21139958 (Version 1)
Quarter: 2022Q3

REPORT INFORMATION
  Report Type: Spontaneous
  Country: NL (occurrence: NL)
  Receive Date: 20220728
  Receipt Date: 20220728
  Transmission Date: 20221027
  Serious: Yes (Life-Threatening, Hospitalization)
  Sender: FDA-Public Use
  Company Number: None

PATIENT
  Age: 95 Year
  Sex: Male
  Weight: 60.4 kg

DRUGS (6)
  1. HYDROCHLOROTHIAZIDE [Suspect]
     Active Substance: HYDROCHLOROTHIAZIDE
     Indication: Hypertension
     Dosage: 1 X PER DAY 1 PIECE, FREQUENCY TIME : 1 HOUR, DURATION: 18 YEARS, UNIT DOSE: 25 MG, FORM STRENGTH :
     Dates: start: 2004, end: 20220706
  2. OMEPRAZOL A [Concomitant]
     Indication: Product used for unknown indication
     Dosage: 40 MG (MILLIGRAM), OMEPRAZOL CAPSULE MSR 40MG / OMEPRAZOL A CAPSULE MSR 40MG - NON-CURRENT DRUG, THE
  3. SIMVASTATIN APOTEX [Concomitant]
     Indication: Product used for unknown indication
     Dosage: 40 MG (MILLIGRAM), SIMVASTATINE TABLET FO 40MG / SIMVASTATINE APOTEX TABLET FILMOMHULD 40MG , THERAP
  4. METFORMINE HCL TEVA [Concomitant]
     Indication: Product used for unknown indication
     Dosage: 1000 MG (MILLIGRAM), METFORMINE TABLET 1000MG / METFORMINE HCL TEVA TABLET 1000MG, THERAPY START AND
  5. LISINOPRIL [Concomitant]
     Active Substance: LISINOPRIL
     Indication: Product used for unknown indication
     Dosage: 10 MG (MILLIGRAM), LISINOPRIL TABLET 10MG / LISINOPRIL ACTAVIS TABLET 10MG - NON-CURRENT DRUG, THERA
  6. ALVESCO [Concomitant]
     Active Substance: CICLESONIDE
     Indication: Product used for unknown indication
     Dosage: AEROSOL, 160 UG/DOSE (MICROGRAMS PER DOSE), CICLESONIDE AEROSOL 160UG/DO / ALVESCO 160 AEROSOL 160MC

REACTIONS (1)
  - Hyponatraemia [Recovering/Resolving]

NARRATIVE: CASE EVENT DATE: 20220706
